FAERS Safety Report 10724885 (Version 2)
Quarter: 2015Q1

REPORT INFORMATION
  Report Type: Spontaneous
  Country: US (occurrence: None)
  Receive Date: 20150116
  Receipt Date: 20150202
  Transmission Date: 20150721
  Serious: Yes (Disabling, Other)
  Sender: FDA-Public Use
  Company Number: 2015-US-000242

PATIENT
  Age: 42 Year
  Sex: Female

DRUGS (1)
  1. XYREM [Suspect]
     Active Substance: SODIUM OXYBATE
     Indication: NARCOLEPSY
     Route: 048
     Dates: start: 201110, end: 2011

REACTIONS (9)
  - Movement disorder [None]
  - Sciatica [None]
  - Iron deficiency anaemia [None]
  - Headache [None]
  - Gait disturbance [None]
  - Fatigue [None]
  - Cellulitis staphylococcal [None]
  - Migraine [None]
  - Hypersomnia [None]

NARRATIVE: CASE EVENT DATE: 20150104
